FAERS Safety Report 13379720 (Version 1)
Quarter: 2017Q1

REPORT INFORMATION
  Report Type: Report from Study
  Country: US (occurrence: US)
  Receive Date: 20170328
  Receipt Date: 20170328
  Transmission Date: 20170429
  Serious: Yes (Hospitalization, Other)
  Sender: FDA-Public Use
  Company Number: US-TAKEDA-2017TUS006132

PATIENT
  Sex: Female

DRUGS (1)
  1. ALOGLIPTIN, PIOGLITAZONE [Suspect]
     Active Substance: ALOGLIPTIN BENZOATE\PIOGLITAZONE HYDROCHLORIDE
     Indication: PRODUCT USED FOR UNKNOWN INDICATION
     Dosage: UNK
     Route: 065

REACTIONS (3)
  - Musculoskeletal disorder [Unknown]
  - Fall [Unknown]
  - Rib fracture [Unknown]
